FAERS Safety Report 4436642-7 (Version None)
Quarter: 2004Q3

REPORT INFORMATION
  Report Type: 
  Country: None (occurrence: None)
  Receive Date: 20040830
  Receipt Date: 20040723
  Transmission Date: 20050211
  Serious: No
  Sender: FDA-Public Use
  Company Number: US-BRISTOL-MYERS SQUIBB COMPANY-12649737

PATIENT
  Age: 36 Year
  Sex: Female
  Weight: 87 kg

DRUGS (3)
  1. ABILIFY [Suspect]
     Indication: BIPOLAR DISORDER
     Dosage: 5 MG/DAY, INC TO 10 MG/DAY ON 12-DEC-03; INC TO 15MG/DAY ON 18-FEB-04. PATIENT DISC. + RESTARTED
     Route: 048
     Dates: start: 20030923
  2. ABILIFY [Suspect]
     Indication: PSYCHOTIC DISORDER
     Dosage: 5 MG/DAY, INC TO 10 MG/DAY ON 12-DEC-03; INC TO 15MG/DAY ON 18-FEB-04. PATIENT DISC. + RESTARTED
     Route: 048
     Dates: start: 20030923
  3. TRAZODONE HCL [Concomitant]
     Dosage: 100-200 MG AT BEDTIME

REACTIONS (1)
  - PREGNANCY [None]
